FAERS Safety Report 5095504-5 (Version None)
Quarter: 2006Q3

REPORT INFORMATION
  Report Type: 
  Country: None (occurrence: None)
  Receive Date: 20060831
  Receipt Date: 20060831
  Transmission Date: 20061208
  Serious: No
  Sender: FDA-Public Use
  Company Number: None

PATIENT
  Age: 3 Year
  Sex: Male
  Weight: 17.2367 kg

DRUGS (2)
  1. DAYTRANA [Suspect]
     Indication: ATTENTION DEFICIT/HYPERACTIVITY DISORDER
     Dosage: PATCH X 1
     Dates: start: 20060825
  2. CLONIDINE [Concomitant]

REACTIONS (6)
  - ILL-DEFINED DISORDER [None]
  - MUSCLE CONTRACTIONS INVOLUNTARY [None]
  - TACHYCARDIA [None]
  - TIC [None]
  - TONGUE DISORDER [None]
  - VOMITING [None]
